FAERS Safety Report 15187256 (Version 2)
Quarter: 2019Q1

REPORT INFORMATION
  Report Type: Report from Study
  Country: US (occurrence: US)
  Receive Date: 20180723
  Receipt Date: 20190130
  Transmission Date: 20190417
  Serious: No
  Sender: FDA-Public Use
  Company Number: US-EXELIXIS-CABO-18013225

PATIENT
  Sex: Male

DRUGS (1)
  1. CABOMETYX [Suspect]
     Active Substance: CABOZANTINIB S-MALATE
     Indication: RENAL CANCER
     Dosage: 60 MG, QD
     Route: 048
     Dates: start: 20180208

REACTIONS (13)
  - Metastases to lung [Unknown]
  - Hypoglycaemia [Unknown]
  - Oedema peripheral [Unknown]
  - Anaemia [Unknown]
  - Hypercalcaemia [Unknown]
  - Skin discolouration [Unknown]
  - Dehydration [Unknown]
  - Neuropathy peripheral [Unknown]
  - Diarrhoea [Unknown]
  - Blood pressure increased [Unknown]
  - Iron deficiency anaemia [Unknown]
  - Palmar-plantar erythrodysaesthesia syndrome [Unknown]
  - Fatigue [Unknown]
